FAERS Safety Report 21542649 (Version 3)
Quarter: 2022Q4

REPORT INFORMATION
  Report Type: Other
  Country: GB (occurrence: GB)
  Receive Date: 20221102
  Receipt Date: 20221214
  Transmission Date: 20230113
  Serious: Yes (Hospitalization, Other)
  Sender: FDA-Public Use
  Company Number: GB-BAXTER-2022BAX021446

PATIENT

DRUGS (33)
  1. ZONISAMIDE [Suspect]
     Active Substance: ZONISAMIDE
     Indication: Epilepsy
     Dosage: UNK
     Route: 065
     Dates: start: 20220524
  2. ZONISAMIDE [Suspect]
     Active Substance: ZONISAMIDE
     Dosage: UNK
     Route: 065
     Dates: start: 20220903
  3. ALFENTANIL [Suspect]
     Active Substance: ALFENTANIL
     Indication: Sedative therapy
     Dosage: UNK (FIRST DOSE)
     Route: 065
     Dates: start: 20220110, end: 20220110
  4. ALFENTANIL [Suspect]
     Active Substance: ALFENTANIL
     Dosage: UNK (SECOND DOSE)
     Route: 065
     Dates: start: 20220207, end: 20220207
  5. ALFENTANIL [Suspect]
     Active Substance: ALFENTANIL
     Dosage: UNK (THIRD DOSE)
     Route: 065
     Dates: start: 20220307, end: 20220307
  6. ALFENTANIL [Suspect]
     Active Substance: ALFENTANIL
     Dosage: UNK (FOURTH DOSE)
     Route: 065
     Dates: start: 20220404, end: 20220404
  7. ALFENTANIL [Suspect]
     Active Substance: ALFENTANIL
     Dosage: UNK (FIFTH DOSE)
     Route: 065
     Dates: start: 20220627, end: 20220627
  8. ALFENTANIL [Suspect]
     Active Substance: ALFENTANIL
     Dosage: UNK (SIXTH DOSE)
     Route: 065
     Dates: start: 20220926, end: 20220926
  9. CLOBAZAM [Suspect]
     Active Substance: CLOBAZAM
     Indication: Epilepsy
     Dosage: UNK
     Route: 065
     Dates: start: 201910
  10. CLONIDINE [Suspect]
     Active Substance: CLONIDINE
     Indication: Sleep disorder
     Dosage: UNK
     Route: 050
     Dates: start: 20210101
  11. CLONIDINE [Suspect]
     Active Substance: CLONIDINE
     Dosage: UNK
     Route: 065
     Dates: start: 20210101
  12. MIDAZOLAM [Suspect]
     Active Substance: MIDAZOLAM
     Indication: Sedative therapy
     Dosage: UNK (WITH FIRST DOSE OF STUDY DRUG) DOSE AND FREQUENCY NOT REPORTED
     Route: 065
     Dates: start: 20220110, end: 20220110
  13. MIDAZOLAM [Suspect]
     Active Substance: MIDAZOLAM
     Dosage: UNK (WITH SECOND DOSE OF STUDY DRUG) DOSE AND FREQUENCY NOT REPORTED
     Route: 065
     Dates: start: 20220207, end: 20220207
  14. MIDAZOLAM [Suspect]
     Active Substance: MIDAZOLAM
     Dosage: UNK (WITH THIRD DOSE OF STUDY DRUG) DOSE AND FREQUENCY NOT REPORTED
     Route: 065
     Dates: start: 20220307, end: 20220307
  15. MIDAZOLAM [Suspect]
     Active Substance: MIDAZOLAM
     Dosage: UNK (WITH FOURTH DOSE OF STUDY DRUG) DOSE AND FREQUENCY NOT REPORTED
     Route: 065
     Dates: start: 20220404, end: 20220404
  16. MIDAZOLAM [Suspect]
     Active Substance: MIDAZOLAM
     Dosage: UNK (WITH FIFTH DOSE OF STUDY DRUG) DOSE AND FREQUENCY NOT REPORTED
     Route: 065
     Dates: start: 20220627, end: 20220627
  17. MIDAZOLAM [Suspect]
     Active Substance: MIDAZOLAM
     Dosage: UNK (WITH SIXTH DOSE OF STUDY DRUG) DOSE AND FREQUENCY NOT REPORTED
     Route: 065
     Dates: start: 20220926, end: 20220926
  18. MELATONIN [Suspect]
     Active Substance: MELATONIN
     Indication: Sleep disorder
     Dosage: UNK
     Route: 065
     Dates: start: 202008
  19. NITROUS OXIDE [Suspect]
     Active Substance: NITROUS OXIDE
     Indication: Sedative therapy
     Dosage: UNK
     Route: 065
     Dates: start: 20220110
  20. PROPOFOL [Suspect]
     Active Substance: PROPOFOL
     Indication: Sedative therapy
     Dosage: UNK (FIRST DOSE)
     Route: 065
     Dates: start: 20220110, end: 20220110
  21. PROPOFOL [Suspect]
     Active Substance: PROPOFOL
     Dosage: UNK (SECOND DOSE)
     Route: 065
     Dates: start: 20220207, end: 20220207
  22. PROPOFOL [Suspect]
     Active Substance: PROPOFOL
     Dosage: UNK (THIRD DOSE)
     Route: 065
     Dates: start: 20220307, end: 20220307
  23. PROPOFOL [Suspect]
     Active Substance: PROPOFOL
     Dosage: UNK (FOURTH DOSE)
     Route: 065
     Dates: start: 20220404, end: 20220404
  24. PROPOFOL [Suspect]
     Active Substance: PROPOFOL
     Dosage: UNK (FIFTH DOSE)
     Route: 065
     Dates: start: 20220627, end: 20220627
  25. PROPOFOL [Suspect]
     Active Substance: PROPOFOL
     Dosage: UNK (SIXTH DOSE)
     Route: 065
     Dates: start: 20220926, end: 20220926
  26. ACETAMINOPHEN [Suspect]
     Active Substance: ACETAMINOPHEN
     Indication: Constipation
     Dosage: UNK
     Route: 065
     Dates: start: 20220120
  27. ACETAMINOPHEN [Suspect]
     Active Substance: ACETAMINOPHEN
     Indication: Pain
     Dosage: UNK
     Route: 065
  28. SEVOFLURANE [Suspect]
     Active Substance: SEVOFLURANE
     Indication: Sedative therapy
     Dosage: UNK (%, FIRST DOSE)
     Route: 055
     Dates: start: 20220110, end: 20220110
  29. SEVOFLURANE [Suspect]
     Active Substance: SEVOFLURANE
     Indication: Anaesthesia procedure
     Dosage: UNK, SINGLE (% , SECOND DOSE)
     Route: 055
     Dates: start: 20220207, end: 20220207
  30. SEVOFLURANE [Suspect]
     Active Substance: SEVOFLURANE
     Dosage: 2.6 PERCENT, SINGLE (THIRD DOSE)
     Route: 055
     Dates: start: 20220307, end: 20220307
  31. SEVOFLURANE [Suspect]
     Active Substance: SEVOFLURANE
     Dosage: UNK, SINGLE (% FOURTH DOSE)
     Route: 055
     Dates: start: 20220404, end: 20220404
  32. SEVOFLURANE [Suspect]
     Active Substance: SEVOFLURANE
     Dosage: UNK, SINGLE (% FIFTH DOSE)
     Route: 055
     Dates: start: 20220627, end: 20220627
  33. SEVOFLURANE [Suspect]
     Active Substance: SEVOFLURANE
     Dosage: UNK, SINGLE (% SIXTH DOSE)
     Route: 055
     Dates: start: 20220926, end: 20220926

REACTIONS (2)
  - Epilepsy with myoclonic-atonic seizures [Recovered/Resolved]
  - Change in seizure presentation [Recovered/Resolved]

NARRATIVE: CASE EVENT DATE: 20220926
